FAERS Safety Report 9550753 (Version 2)
Quarter: 2014Q2

REPORT INFORMATION
  Report Type: Spontaneous
  Country: US (occurrence: US)
  Receive Date: 20130924
  Receipt Date: 20140402
  Transmission Date: 20141212
  Serious: No
  Sender: FDA-Public Use
  Company Number: US-SANOFI-AVENTIS-2013SA047660

PATIENT
  Age: 57 Year
  Sex: Female

DRUGS (2)
  1. AUBAGIO [Suspect]
     Indication: MULTIPLE SCLEROSIS
     Dosage: PRODUCT START DATE: 18 DAYS AGO.
     Route: 048
  2. AUBAGIO [Suspect]
     Indication: MULTIPLE SCLEROSIS
     Route: 048
     Dates: start: 20130420

REACTIONS (11)
  - Fatigue [Unknown]
  - Asthenia [Unknown]
  - Hot flush [Unknown]
  - Joint swelling [Unknown]
  - Condition aggravated [Unknown]
  - Muscle spasms [Unknown]
  - Arthralgia [Unknown]
  - Dizziness [Unknown]
  - Neck pain [Unknown]
  - Headache [Unknown]
  - Hypoaesthesia [Unknown]
